FAERS Safety Report 15266443 (Version 2)
Quarter: 2018Q4

REPORT INFORMATION
  Report Type: Other
  Country: CA (occurrence: CA)
  Receive Date: 20180810
  Receipt Date: 20181016
  Transmission Date: 20190204
  Serious: Yes (Other)
  Sender: FDA-Public Use
  Company Number: CA-MERZ NORTH AMERICA, INC.-18MRZ-00408

PATIENT
  Age: 66 Year
  Sex: Female

DRUGS (2)
  1. XEOMIN [Suspect]
     Active Substance: INCOBOTULINUMTOXINA
     Indication: SKIN WRINKLING
     Dosage: 42 UNITS
  2. XEOMIN [Suspect]
     Active Substance: INCOBOTULINUMTOXINA
     Indication: OFF LABEL USE

REACTIONS (5)
  - Multiple sclerosis [Unknown]
  - Off label use [Unknown]
  - Paraesthesia [Unknown]
  - Guillain-Barre syndrome [Unknown]
  - Hypoaesthesia [Unknown]
